FAERS Safety Report 8882603 (Version 1)
Quarter: 2012Q4

REPORT INFORMATION
  Report Type: 
  Country: US (occurrence: US)
  Receive Date: 20121105
  Receipt Date: 20121105
  Transmission Date: 20130627
  Serious: Yes (Other)
  Sender: FDA-Public Use
  Company Number: US-TEVA-368034USA

PATIENT
  Age: 50 Year
  Sex: Female

DRUGS (5)
  1. FLUOROURACIL [Suspect]
     Indication: COLON CANCER STAGE III
     Dosage: 400 mg/m2; bolus; part of modified FOLFOX6
  2. FLUOROURACIL [Suspect]
     Indication: COLON CANCER STAGE III
     Dosage: 2400 mg/m2 over 46h; part of modified FOLFOX6
     Route: 041
  3. OXALIPLATIN [Suspect]
     Indication: COLON CANCER STAGE III
     Dosage: 85 mg/m2 on d1; part of modified FOLFOX6
     Route: 042
  4. FOLINIC ACID [Suspect]
     Indication: COLON CANCER STAGE III
     Dosage: 400 mg/m2 over 2h; part of modified FOLFOX6
     Route: 041
  5. BEVACIZUMAB [Suspect]
     Indication: COLON CANCER STAGE III
     Dosage: 5 mg/kg every 2wks
     Route: 065

REACTIONS (14)
  - Leukoencephalopathy [Recovering/Resolving]
  - Febrile neutropenia [Recovered/Resolved]
  - Aphasia [Unknown]
  - Dysphagia [Recovering/Resolving]
  - Mucosal inflammation [Recovering/Resolving]
  - Gait disturbance [Recovering/Resolving]
  - Asthenia [Recovering/Resolving]
  - Dysarthria [Recovering/Resolving]
  - Dysphonia [Recovering/Resolving]
  - Cerebellar syndrome [Unknown]
  - Memory impairment [Unknown]
  - Alopecia [Recovering/Resolving]
  - Palmar-plantar erythrodysaesthesia syndrome [Recovering/Resolving]
  - Photophobia [Recovering/Resolving]
